FAERS Safety Report 4994783-X (Version None)
Quarter: 2006Q1

REPORT INFORMATION
  Report Type: 
  Country: None (occurrence: None)
  Receive Date: 20060314
  Receipt Date: 20051212
  Transmission Date: 20060701
  Serious: Yes (Other)
  Sender: FDA-Public Use
  Company Number: 200514971BCC

PATIENT
  Sex: Female
  Weight: 83.9154 kg

DRUGS (1)
  1. NAPROXEN SODIUM [Suspect]
     Dosage: ORAL
     Route: 048

REACTIONS (1)
  - GASTRIC HAEMORRHAGE [None]
